FAERS Safety Report 12886350 (Version 2)
Quarter: 2017Q1

REPORT INFORMATION
  Report Type: Spontaneous
  Country: US (occurrence: US)
  Receive Date: 20161026
  Receipt Date: 20170110
  Transmission Date: 20170428
  Serious: No
  Sender: FDA-Public Use
  Company Number: US-BAYER-2016-190820

PATIENT
  Age: 80 Year
  Sex: Male

DRUGS (8)
  1. XOFIGO [Suspect]
     Active Substance: RADIUM RA-223 DICHLORIDE
     Indication: PROSTATE CANCER METASTATIC
     Dosage: 159.4 ?CI
     Dates: start: 20160823
  2. AMLODIPINE [Concomitant]
     Active Substance: AMLODIPINE BESYLATE
     Dosage: DAILY DOSE 5 MG
  3. ZETIA [Concomitant]
     Active Substance: EZETIMIBE
     Dosage: DAILY DOSE 10 MG
  4. LUPRON [Concomitant]
     Active Substance: LEUPROLIDE ACETATE
  5. XOFIGO [Suspect]
     Active Substance: RADIUM RA-223 DICHLORIDE
     Indication: PROSTATE CANCER METASTATIC
     Dosage: 168 ?CI
     Dates: start: 20160628
  6. ATORVASTATIN [Concomitant]
     Active Substance: ATORVASTATIN
     Dosage: DAILY DOSE 40 MG
  7. TRAMADOL. [Concomitant]
     Active Substance: TRAMADOL
     Indication: PAIN
     Dosage: DAILY DOSE 325 MG
  8. XOFIGO [Suspect]
     Active Substance: RADIUM RA-223 DICHLORIDE
     Indication: METASTASES TO BONE
     Dosage: 162.6 ?CI
     Dates: start: 20160726

REACTIONS (7)
  - Groin infection [None]
  - Skin discolouration [None]
  - Malaise [None]
  - Skin exfoliation [None]
  - Weight decreased [None]
  - Blister [None]
  - Decreased appetite [None]

NARRATIVE: CASE EVENT DATE: 201609
